FAERS Safety Report 15020312 (Version 2)
Quarter: 2018Q2

REPORT INFORMATION
  Report Type: Spontaneous
  Country: FR (occurrence: FR)
  Receive Date: 20180618
  Receipt Date: 20180628
  Transmission Date: 20180711
  Serious: Yes (Death, Hospitalization, Other)
  Sender: FDA-Public Use
  Company Number: FR-SUN PHARMACEUTICAL INDUSTRIES LTD-2018RR-175943

PATIENT
  Age: 80 Year
  Sex: Female
  Weight: 50 kg

DRUGS (9)
  1. PREDNISONE. [Suspect]
     Active Substance: PREDNISONE
     Indication: DERMATOMYOSITIS
     Dosage: 45 MG, QD
     Route: 040
     Dates: start: 20170911, end: 20170911
  2. FUROSEMIDE. [Suspect]
     Active Substance: FUROSEMIDE
     Indication: CARDIAC FAILURE
     Dosage: 20 MG, DAILY
     Route: 042
     Dates: start: 20170911, end: 20170911
  3. METHOTREXATE. [Concomitant]
     Active Substance: METHOTREXATE
     Indication: NEOPLASM
     Dosage: IN COMBINATION WITH THREE CYCLES OF IMMUNOGLOBULINS
     Route: 065
     Dates: start: 20170801
  4. CORDARONE [Suspect]
     Active Substance: AMIODARONE HYDROCHLORIDE
     Indication: ARRHYTHMIA
     Dosage: SCORED TABLET
     Route: 040
     Dates: start: 20170911, end: 20170911
  5. PARACETAMOL [Suspect]
     Active Substance: ACETAMINOPHEN
     Indication: PAIN
     Dosage: 1 DF, QD
     Route: 040
     Dates: start: 20170911, end: 20170911
  6. DIGOXIN. [Suspect]
     Active Substance: DIGOXIN
     Indication: ARRHYTHMIA
     Dosage: 0.25
     Route: 040
     Dates: start: 20170911, end: 20170911
  7. LEVOTHYROX NF [Suspect]
     Active Substance: LEVOTHYROXINE SODIUM
     Indication: HYPOTHYROIDISM
     Dosage: 175 ?G, QD
     Route: 040
     Dates: start: 20170911, end: 20170911
  8. CALCIDOSE                          /00944201/ [Suspect]
     Active Substance: CALCIUM CARBONATE\CHOLECALCIFEROL
     Indication: OSTEOPOROSIS PROPHYLAXIS
     Dosage: 1 SACHET
     Route: 040
     Dates: start: 20170911, end: 20170911
  9. ELIQUIS [Suspect]
     Active Substance: APIXABAN
     Indication: THROMBOSIS PROPHYLAXIS
     Dosage: 1 DF, QD
     Route: 040
     Dates: start: 20170911, end: 20170911

REACTIONS (2)
  - Cardiac arrest [Fatal]
  - Medication error [Fatal]

NARRATIVE: CASE EVENT DATE: 20170911
